FAERS Safety Report 8261749-6 (Version None)
Quarter: 2012Q2

REPORT INFORMATION
  Report Type: 
  Country: None (occurrence: None)
  Receive Date: 20120402
  Receipt Date: 20120322
  Transmission Date: 20120825
  Serious: Yes (Death, Hospitalization, Other)
  Sender: FDA-Public Use
  Company Number: AUR-APL-2011-05533

PATIENT
  Age: 60 Year
  Sex: Male

DRUGS (15)
  1. NOVOLOG [Suspect]
     Indication: DIABETES MELLITUS
     Dosage: (8 IU), UNKNOWN
     Dates: start: 20110711, end: 20110719
  2. BLINDED THERAPY [Suspect]
     Indication: TYPE 2 DIABETES MELLITUS
     Dosage: UNKNOWN
     Dates: start: 20110414
  3. ACETYLSALICYLIC ACID SRT [Suspect]
     Indication: PRODUCT USED FOR UNKNOWN INDICATION
     Dosage: (75 MG), UNKNOWN
     Dates: end: 20110722
  4. ISOPHANE INSULIN [Suspect]
     Indication: DIABETES MELLITUS
     Dosage: (8 IU), UNKNOWN
     Dates: start: 20110718
  5. IMPORTAL (LACTITOL) [Concomitant]
  6. METFORMIN HCL [Suspect]
     Indication: TYPE 2 DIABETES MELLITUS
     Dosage: (1.5 GM), UNKNOWN
  7. CILAXORAL (SODIUM PICOSULFATE) [Suspect]
     Indication: PRODUCT USED FOR UNKNOWN INDICATION
     Dosage: UNKNOWN
     Dates: start: 20110712, end: 20110725
  8. LACTULOSE [Suspect]
     Indication: PRODUCT USED FOR UNKNOWN INDICATION
     Dosage: UNKNOWN
     Dates: start: 20110720, end: 20110725
  9. ASPIRIN [Concomitant]
  10. OMEPRAZOLE [Concomitant]
  11. DALTEPARIN SODIUM [Suspect]
     Indication: PRODUCT USED FOR UNKNOWN INDICATION
     Dosage: (1500 IU, 1 D), UNKNOWN
  12. OXYCONTIN [Concomitant]
  13. SPIRONOLACTONE [Concomitant]
  14. CLOPIDOGREL [Suspect]
     Indication: PRODUCT USED FOR UNKNOWN INDICATION
     Dosage: (75 MG), UNKNOWN
  15. FUROSEMIDE [Concomitant]

REACTIONS (16)
  - ABDOMINAL PAIN [None]
  - PORTAL HYPERTENSION [None]
  - DILATATION VENTRICULAR [None]
  - DEHYDRATION [None]
  - HAEMATURIA [None]
  - SUDDEN CARDIAC DEATH [None]
  - PULMONARY EMBOLISM [None]
  - RIGHT VENTRICULAR FAILURE [None]
  - HEPATIC CIRRHOSIS [None]
  - CONSTIPATION [None]
  - COUGH [None]
  - NAUSEA [None]
  - INGUINAL HERNIA [None]
  - PORTAL VEIN THROMBOSIS [None]
  - PANCREATITIS ACUTE [None]
  - ASCITES [None]
